FAERS Safety Report 16849616 (Version 1)
Quarter: 2019Q4

REPORT INFORMATION
  Report Type: Spontaneous
  Country: US (occurrence: US)
  Receive Date: 20190925
  Receipt Date: 20190925
  Transmission Date: 20200122
  Serious: Yes (Other)
  Sender: FDA-Public Use
  Company Number: None

PATIENT
  Age: 83 Year
  Sex: Male
  Weight: 77.4 kg

DRUGS (2)
  1. GADOLINIUM [Suspect]
     Active Substance: GADOLINIUM
     Indication: PROSTATE CANCER
     Dosage: ?          OTHER FREQUENCY:EVERY SIX MONTHS;?
     Route: 040
     Dates: start: 20150925
  2. GADOLINIUM [Suspect]
     Active Substance: GADOLINIUM
     Indication: MENINGIOMA
     Dosage: ?          OTHER FREQUENCY:EVERY SIX MONTHS;?
     Route: 040
     Dates: start: 20150925

REACTIONS (3)
  - Sensory disturbance [None]
  - Hypoaesthesia [None]
  - Oral discomfort [None]

NARRATIVE: CASE EVENT DATE: 20180901
